FAERS Safety Report 5502877-5 (Version None)
Quarter: 2007Q4

REPORT INFORMATION
  Report Type: 
  Country: None (occurrence: None)
  Receive Date: 20071031
  Receipt Date: 20071024
  Transmission Date: 20080405
  Serious: Yes (Life-Threatening, Hospitalization)
  Sender: FDA-Public Use
  Company Number: IS-BAXTER-2007BH008564

PATIENT
  Age: 25 Year
  Sex: Male

DRUGS (2)
  1. EXTRANEAL [Suspect]
     Indication: PERITONEAL DIALYSIS
     Dosage: DOSE UNIT:UNKNOWN
     Route: 033
     Dates: start: 20040101, end: 20070901
  2. DIANEAL [Concomitant]

REACTIONS (3)
  - CATHETER RELATED COMPLICATION [None]
  - PERITONITIS [None]
  - SCLEROSING ENCAPSULATING PERITONITIS [None]
